FAERS Safety Report 6641618-5 (Version None)
Quarter: 2010Q1

REPORT INFORMATION
  Report Type: 
  Country: None (occurrence: None)
  Receive Date: 20100317
  Receipt Date: 20100317
  Transmission Date: 20100710
  Serious: Yes (Hospitalization)
  Sender: FDA-Public Use
  Company Number: None

PATIENT
  Sex: Male
  Weight: 62.1 kg

DRUGS (5)
  1. DOXORUBICIN HYDROCHLORIDE [Suspect]
     Dosage: 129 MG
  2. METHOTREXATE [Suspect]
     Dosage: 15 MG
  3. PEG-L ASPARAGINASE (K-H) [Suspect]
     Dosage: 4250 IU
  4. VINCRISTINE SULFATE [Suspect]
     Dosage: 6 MG
  5. DEXAMETHASONE [Suspect]
     Dosage: 252 MG

REACTIONS (14)
  - ACUTE RESPIRATORY DISTRESS SYNDROME [None]
  - ARRHYTHMIA [None]
  - CARDIO-RESPIRATORY ARREST [None]
  - DEHYDRATION [None]
  - DYSPHAGIA [None]
  - GENERAL PHYSICAL HEALTH DETERIORATION [None]
  - ISCHAEMIC HEPATITIS [None]
  - MULTI-ORGAN FAILURE [None]
  - NECROTISING OESOPHAGITIS [None]
  - OESOPHAGITIS HAEMORRHAGIC [None]
  - OESOPHAGITIS ULCERATIVE [None]
  - PANCYTOPENIA [None]
  - REFUSAL OF TREATMENT BY RELATIVE [None]
  - URINE OUTPUT DECREASED [None]
